FAERS Safety Report 16896400 (Version 2)
Quarter: 2019Q4

REPORT INFORMATION
  Report Type: Spontaneous
  Country: TR (occurrence: TR)
  Receive Date: 20191008
  Receipt Date: 20191029
  Transmission Date: 20200122
  Serious: Yes (Hospitalization, Other)
  Sender: FDA-Public Use
  Company Number: TR-ALEXION PHARMACEUTICALS INC.-A201915389

PATIENT
  Age: 24 Month
  Sex: Male

DRUGS (2)
  1. NO DRUG [Suspect]
     Active Substance: UNSPECIFIED INGREDIENT
     Indication: HAEMOLYTIC URAEMIC SYNDROME
     Dosage: UNK
     Route: 065
  2. NO DRUG [Suspect]
     Active Substance: UNSPECIFIED INGREDIENT
     Indication: OFF LABEL USE

REACTIONS (14)
  - Transfusion [Unknown]
  - Platelet count decreased [Unknown]
  - Fibrin D dimer increased [Unknown]
  - Haemoglobin decreased [Unknown]
  - Diarrhoea haemorrhagic [Unknown]
  - Blood lactate dehydrogenase increased [Unknown]
  - Blood urea increased [Unknown]
  - Glomerular filtration rate decreased [Unknown]
  - Haptoglobin decreased [Unknown]
  - Blood creatinine increased [Unknown]
  - Peritoneal dialysis [Recovered/Resolved]
  - Anuria [Unknown]
  - Urine protein/creatinine ratio increased [Unknown]
  - Off label use [Unknown]
